FAERS Safety Report 7334317-8 (Version None)
Quarter: 2011Q1

REPORT INFORMATION
  Report Type: 
  Country: None (occurrence: None)
  Receive Date: 20110307
  Receipt Date: 20110223
  Transmission Date: 20110831
  Serious: Yes (Other)
  Sender: FDA-Public Use
  Company Number: JP-JNJFOC-20110300902

PATIENT
  Age: 36 Year
  Sex: Female

DRUGS (10)
  1. ITRACONAZOLE [Suspect]
     Indication: PRODUCT USED FOR UNKNOWN INDICATION
     Route: 048
  2. ZOLPIDEM [Concomitant]
     Route: 065
  3. GANCICLOVIR [Concomitant]
     Route: 065
  4. OMEPRAZOLE [Concomitant]
     Route: 065
  5. METHYLPREDNISOLONE [Concomitant]
     Route: 065
  6. SULFAMETHOXAZOLE/TRIMETHOPRIM [Concomitant]
     Route: 065
  7. CYCLOSPORINE [Concomitant]
     Route: 065
  8. BROTIZOLAM [Suspect]
     Indication: PRODUCT USED FOR UNKNOWN INDICATION
     Route: 065
  9. CEFEPIME [Concomitant]
     Route: 065
  10. VANCOMYCIN [Concomitant]
     Route: 065

REACTIONS (2)
  - LIVER FUNCTION TEST ABNORMAL [None]
  - CHOLESTATIC LIVER INJURY [None]
